FAERS Safety Report 10222072 (Version 1)
Quarter: 2014Q2

REPORT INFORMATION
  Report Type: Spontaneous
  Country: US (occurrence: None)
  Receive Date: 20140606
  Receipt Date: 20140606
  Transmission Date: 20141212
  Serious: No
  Sender: FDA-Public Use
  Company Number: None

PATIENT
  Age: 60 Year
  Sex: Female
  Weight: 108.86 kg

DRUGS (1)
  1. BRINTELLIX [Suspect]
     Indication: MAJOR DEPRESSION
     Dosage: ONCE DAILY ONCE DAILY TAKEN BY MOUTH
     Route: 048

REACTIONS (9)
  - Headache [None]
  - Dizziness [None]
  - Somnolence [None]
  - Hunger [None]
  - Weight increased [None]
  - Anxiety [None]
  - Depression [None]
  - Suicidal ideation [None]
  - Unevaluable event [None]
